FAERS Safety Report 16305579 (Version 3)
Quarter: 2021Q3

REPORT INFORMATION
  Report Type: Spontaneous
  Country: US (occurrence: US)
  Receive Date: 20190513
  Receipt Date: 20210721
  Transmission Date: 20211014
  Serious: Yes (Hospitalization, Other)
  Sender: FDA-Public Use
  Company Number: US-ASTRAZENECA-2019SE65447

PATIENT
  Age: 448 Month
  Sex: Male
  Weight: 65.8 kg

DRUGS (63)
  1. PRILOSEC [Suspect]
     Active Substance: OMEPRAZOLE MAGNESIUM
     Indication: GASTROOESOPHAGEAL REFLUX DISEASE
     Dosage: GENERIC
     Route: 065
     Dates: start: 2013
  2. ZANTAC [Concomitant]
     Active Substance: RANITIDINE HYDROCHLORIDE
     Dosage: 150
     Dates: start: 2002, end: 2003
  3. ASPIRIN. [Concomitant]
     Active Substance: ASPIRIN
  4. MIDAZOLAM. [Concomitant]
     Active Substance: MIDAZOLAM
  5. LIDOCAINE. [Concomitant]
     Active Substance: LIDOCAINE
  6. DILAUDID [Concomitant]
     Active Substance: HYDROMORPHONE HYDROCHLORIDE
  7. MORPHINE [Concomitant]
     Active Substance: MORPHINE
  8. RENVELA [Concomitant]
     Active Substance: SEVELAMER CARBONATE
  9. PRILOSEC [Suspect]
     Active Substance: OMEPRAZOLE MAGNESIUM
     Indication: GASTROOESOPHAGEAL REFLUX DISEASE
     Route: 048
     Dates: start: 199801, end: 200812
  10. PROPOFOL. [Concomitant]
     Active Substance: PROPOFOL
  11. HALOPERIDOL. [Concomitant]
     Active Substance: HALOPERIDOL
  12. CEPACOL [Concomitant]
     Active Substance: BENZOCAINE
  13. POLYVINYL [Concomitant]
  14. SPIRIVA [Concomitant]
     Active Substance: TIOTROPIUM BROMIDE MONOHYDRATE
  15. BENTYL [Concomitant]
     Active Substance: DICYCLOMINE HYDROCHLORIDE
  16. ATIVAN [Concomitant]
     Active Substance: LORAZEPAM
  17. BACTRIM [Concomitant]
     Active Substance: SULFAMETHOXAZOLE\TRIMETHOPRIM
  18. CLONAZEPAM. [Concomitant]
     Active Substance: CLONAZEPAM
     Indication: SLEEP DISORDER
     Dates: start: 20120914, end: 20140813
  19. HYDROCODONE [Concomitant]
     Active Substance: HYDROCODONE
     Indication: ANALGESIC THERAPY
     Dates: start: 20100823, end: 20101122
  20. ALBUTEROL. [Concomitant]
     Active Substance: ALBUTEROL
  21. DECADRON [Concomitant]
     Active Substance: DEXAMETHASONE
  22. PEPCID [Concomitant]
     Active Substance: FAMOTIDINE
  23. SERTRALINE [Concomitant]
     Active Substance: SERTRALINE HYDROCHLORIDE
  24. THIAMINE. [Concomitant]
     Active Substance: THIAMINE
  25. PANTOPRAZOLE [Suspect]
     Active Substance: PANTOPRAZOLE
     Indication: GASTROOESOPHAGEAL REFLUX DISEASE
     Route: 065
     Dates: start: 2013
  26. OXYCODONE [Concomitant]
     Active Substance: OXYCODONE
     Indication: ANALGESIC THERAPY
     Dates: start: 20101102, end: 20110516
  27. VANCOMYCIN [Concomitant]
     Active Substance: VANCOMYCIN
  28. SIMETHICONE (DIMETHICONE) [Concomitant]
     Active Substance: DIMETHICONE
  29. REGLAN [Concomitant]
     Active Substance: METOCLOPRAMIDE HYDROCHLORIDE
  30. CARDENE [Concomitant]
     Active Substance: NICARDIPINE HYDROCHLORIDE
  31. NITROGLYCERIN. [Concomitant]
     Active Substance: NITROGLYCERIN
  32. PRILOSEC [Suspect]
     Active Substance: OMEPRAZOLE MAGNESIUM
     Indication: GASTROOESOPHAGEAL REFLUX DISEASE
     Route: 048
     Dates: start: 1998, end: 2013
  33. IBUPROFEN. [Concomitant]
     Active Substance: IBUPROFEN
     Indication: HEADACHE
  34. ZANTAC [Concomitant]
     Active Substance: RANITIDINE HYDROCHLORIDE
     Dosage: GENERIC
     Dates: start: 201411, end: 201706
  35. NUBAIN [Concomitant]
     Active Substance: NALBUPHINE HYDROCHLORIDE
  36. CHLORHEXIDINE [Concomitant]
     Active Substance: CHLORHEXIDINE
  37. DEXTROSE. [Concomitant]
     Active Substance: DEXTROSE
  38. PREDNISONE. [Concomitant]
     Active Substance: PREDNISONE
  39. PRILOSEC [Suspect]
     Active Substance: OMEPRAZOLE MAGNESIUM
     Indication: GASTROOESOPHAGEAL REFLUX DISEASE
     Dosage: GENERIC
     Route: 065
     Dates: start: 20120308, end: 20120619
  40. PENICILLIN [Concomitant]
     Active Substance: PENICILLIN
  41. SUBLIMAZE [Concomitant]
     Active Substance: FENTANYL CITRATE
  42. ZOFRAN [Concomitant]
     Active Substance: ONDANSETRON HYDROCHLORIDE
  43. HEPARIN [Concomitant]
     Active Substance: HEPARIN SODIUM
  44. BENADRYL [Concomitant]
     Active Substance: DIPHENHYDRAMINE HYDROCHLORIDE
  45. HYDROMORPHONE [Concomitant]
     Active Substance: HYDROMORPHONE
  46. TYLENOL [Concomitant]
     Active Substance: ACETAMINOPHEN
  47. LISINOPRIL. [Concomitant]
     Active Substance: LISINOPRIL
  48. SUBOXONE [Concomitant]
     Active Substance: BUPRENORPHINE HYDROCHLORIDE\NALOXONE HYDROCHLORIDE
  49. CLONIDINE. [Concomitant]
     Active Substance: CLONIDINE
  50. PANTOPRAZOLE [Suspect]
     Active Substance: PANTOPRAZOLE
     Indication: GASTROOESOPHAGEAL REFLUX DISEASE
     Route: 065
     Dates: start: 20131015, end: 20131214
  51. ZANTAC [Concomitant]
     Active Substance: RANITIDINE HYDROCHLORIDE
     Dosage: GENERIC
     Dates: start: 200710, end: 201006
  52. CIPROFLOXACIN. [Concomitant]
     Active Substance: CIPROFLOXACIN
  53. BUSPAR [Concomitant]
     Active Substance: BUSPIRONE HYDROCHLORIDE
  54. SEROQUEL [Concomitant]
     Active Substance: QUETIAPINE FUMARATE
  55. DOCUSATE [Concomitant]
     Active Substance: DOCUSATE
  56. PRILOSEC [Suspect]
     Active Substance: OMEPRAZOLE MAGNESIUM
     Indication: GASTROOESOPHAGEAL REFLUX DISEASE
     Route: 048
     Dates: start: 20130509
  57. ZOLPIDEM [Concomitant]
     Active Substance: ZOLPIDEM TARTRATE
  58. TRAMADOL. [Concomitant]
     Active Substance: TRAMADOL
  59. TUMS [Concomitant]
     Active Substance: CALCIUM CARBONATE
  60. CALCIUM GLUCONATE. [Concomitant]
     Active Substance: CALCIUM GLUCONATE
  61. LOPERAMIDE [Concomitant]
     Active Substance: LOPERAMIDE
  62. COMPAZINE [Concomitant]
     Active Substance: PROCHLORPERAZINE MALEATE
  63. FOLIC ACID. [Concomitant]
     Active Substance: FOLIC ACID

REACTIONS (7)
  - End stage renal disease [Not Recovered/Not Resolved]
  - Acute kidney injury [Unknown]
  - Chronic kidney disease-mineral and bone disorder [Unknown]
  - Nephrogenic anaemia [Unknown]
  - Chronic kidney disease [Not Recovered/Not Resolved]
  - Renal failure [Unknown]
  - Hyperparathyroidism secondary [Unknown]

NARRATIVE: CASE EVENT DATE: 201007
